FAERS Safety Report 9958348 (Version 2)
Quarter: 2014Q1

REPORT INFORMATION
  Report Type: Report from Study
  Country: DE (occurrence: DE)
  Receive Date: 20140305
  Receipt Date: 20140319
  Transmission Date: 20141002
  Serious: Yes (Other)
  Sender: FDA-Public Use
  Company Number: DE-ROCHE-1358625

PATIENT
  Age: 87 Year
  Sex: Female
  Weight: 62 kg

DRUGS (4)
  1. RANIBIZUMAB [Suspect]
     Indication: AGE-RELATED MACULAR DEGENERATION
     Route: 050
     Dates: start: 20120712
  2. RANIBIZUMAB [Suspect]
     Route: 050
     Dates: start: 20130411, end: 20130701
  3. RANIBIZUMAB [Suspect]
     Dosage: PRN (AS NEDDED)
     Route: 050
     Dates: start: 20130502
  4. RANIBIZUMAB [Suspect]
     Dosage: 05/SEP/2013, WAS THE LAST DOSE OF RANIBIZUMAB PRIOR TO SAE.
     Route: 050
     Dates: start: 20130701

REACTIONS (5)
  - Retinal depigmentation [Not Recovered/Not Resolved]
  - Detachment of retinal pigment epithelium [Not Recovered/Not Resolved]
  - Retinal oedema [Unknown]
  - Visual acuity reduced [Unknown]
  - Metamorphopsia [Unknown]
